FAERS Safety Report 11501926 (Version 1)
Quarter: 2015Q3

REPORT INFORMATION
  Report Type: Spontaneous
  Country: US (occurrence: US)
  Receive Date: 20150914
  Receipt Date: 20150914
  Transmission Date: 20151125
  Serious: Yes (Congenital Anomaly, Other)
  Sender: FDA-Public Use
  Company Number: US-PFIZER INC-2015303464

PATIENT
  Sex: Female
  Weight: 3 kg

DRUGS (5)
  1. IRON [Concomitant]
     Active Substance: IRON
     Dosage: UNK
     Route: 064
  2. PRENATAL VITAMINS [Concomitant]
     Active Substance: VITAMINS
     Indication: ROUTINE HEALTH MAINTENANCE
     Dosage: UNK, DAILY
     Route: 064
     Dates: end: 20110930
  3. ZOLOFT [Suspect]
     Active Substance: SERTRALINE HYDROCHLORIDE
     Indication: DEPRESSION
     Dosage: UNK
     Route: 064
  4. CELEXA [Concomitant]
     Active Substance: CITALOPRAM HYDROBROMIDE
     Indication: ANXIETY
     Dosage: UNK
     Route: 064
  5. PROZAC [Concomitant]
     Active Substance: FLUOXETINE HYDROCHLORIDE
     Indication: ANXIETY
     Dosage: UNK
     Route: 064

REACTIONS (3)
  - Talipes [Unknown]
  - Maternal exposure during pregnancy [Unknown]
  - Congenital hand malformation [Unknown]

NARRATIVE: CASE EVENT DATE: 20111001
